FAERS Safety Report 9754009 (Version 1)
Quarter: 2013Q4

REPORT INFORMATION
  Report Type: Spontaneous
  Country: US (occurrence: US)
  Receive Date: 20131213
  Receipt Date: 20131213
  Transmission Date: 20140711
  Serious: No
  Sender: FDA-Public Use
  Company Number: US-GLAXOSMITHKLINE-A1006873A

PATIENT
  Age: 74 Year
  Sex: Female

DRUGS (1)
  1. NICORETTE NICOTINE POLACRILEX LOZENGE, 4MG [Suspect]
     Indication: EX-TOBACCO USER
     Dates: start: 20130101

REACTIONS (3)
  - Drug ineffective [Unknown]
  - Drug administration error [Unknown]
  - Product quality issue [Unknown]
